FAERS Safety Report 8129327-7 (Version None)
Quarter: 2012Q1

REPORT INFORMATION
  Report Type: 
  Country: None (occurrence: None)
  Receive Date: 20120210
  Receipt Date: 20120203
  Transmission Date: 20120608
  Serious: Yes (Other)
  Sender: FDA-Public Use
  Company Number: PHHY2012JP001740

PATIENT
  Age: 44 Year
  Sex: Female

DRUGS (11)
  1. OXALIPLATIN [Suspect]
     Dosage: 65 MG/M2, EVERY 3 WEEKS
  2. FLUOROURACIL [Suspect]
     Indication: COLON CANCER
     Dosage: 400 MG/M2, ON DAYS 1-2
     Dates: start: 20090801
  3. FLUOROURACIL [Suspect]
     Dosage: 400 MG/M2, UNK
     Dates: start: 20100301
  4. FLUOROURACIL [Suspect]
     Dosage: CONTINUOUS 46-HOUR IV INFUSION OF FLUOROURACIL 2400 MG/M2 , EVERY 3 WEEKS
     Dates: start: 20100301
  5. OXALIPLATIN [Suspect]
     Indication: COLON CANCER
     Dosage: 85 MG/M2, ON DAY 1
     Dates: start: 20090801
  6. FLUOROURACIL [Suspect]
     Dosage: CONTINUOUS 22-HOUR IV INFUSION; 600 MG/M2, ON DAYS 1-2, EVERY 2 WEEKS
     Route: 042
  7. LEUCOVORIN CALCIUM [Suspect]
     Dosage: 200 MG/M2, UNK
     Dates: start: 20100301
  8. IRINOTECAN HCL [Suspect]
     Indication: COLON CANCER
     Dosage: 150 MG/M2, UNK
     Dates: start: 20100301
  9. PANITUMUMAB [Suspect]
     Indication: COLON CANCER
     Dosage: 6 MG/KG ON DAY 1
  10. BEVACIZUMAB [Suspect]
     Indication: COLON CANCER
     Dosage: 5 MG/KG ON DAY 1
     Dates: start: 20100301
  11. LEUCOVORIN CALCIUM [Suspect]
     Indication: COLON CANCER
     Dosage: 100 MG/M2, UNK
     Dates: start: 20090801

REACTIONS (4)
  - NEUROTOXICITY [None]
  - DERMATITIS ACNEIFORM [None]
  - NEUTROPENIA [None]
  - NEOPLASM MALIGNANT [None]
